FAERS Safety Report 4311100-9 (Version None)
Quarter: 2004Q1

REPORT INFORMATION
  Report Type: 
  Country: None (occurrence: None)
  Receive Date: 20040302
  Receipt Date: 20040223
  Transmission Date: 20041129
  Serious: Yes (Hospitalization)
  Sender: FDA-Public Use
  Company Number: US-JNJFOC-20040205162

PATIENT
  Age: 44 Year
  Sex: Female
  Weight: 65.318 kg

DRUGS (9)
  1. INFLIXIMAB (INFLIXIMAB, RECOMBINANT) LYOPHILIZED POWDER [Suspect]
     Indication: RHEUMATOID ARTHRITIS
     Dosage: INTRAVENOUS
     Route: 042
     Dates: start: 20010529
  2. PREDNISONE [Concomitant]
  3. ZOLOFT [Concomitant]
  4. SULINDAC [Concomitant]
  5. NEURONTIN [Concomitant]
  6. FOSAMAX [Concomitant]
  7. XANAX [Concomitant]
  8. METHOTREXATE [Concomitant]
  9. CALCIUM + D (CALCIUM) [Concomitant]

REACTIONS (2)
  - MYOCARDIAL INFARCTION [None]
  - PERICARDITIS [None]
